FAERS Safety Report 5109618-4 (Version None)
Quarter: 2006Q3

REPORT INFORMATION
  Report Type: 
  Country: None (occurrence: None)
  Receive Date: 20060918
  Receipt Date: 20060905
  Transmission Date: 20061208
  Serious: Yes (Hospitalization, Other)
  Sender: FDA-Public Use
  Company Number: 2003030820

PATIENT
  Age: 65 Year
  Sex: Female

DRUGS (4)
  1. ATORVASTATIN CALCIUM [Suspect]
     Indication: HYPERCHOLESTEROLAEMIA
     Dosage: 20 MG (DAILY)
     Dates: start: 20000401, end: 20000701
  2. AZITHROMYCIN [Suspect]
     Indication: INFLUENZA LIKE ILLNESS
     Dosage: 500 MG (DAILY)
     Dates: start: 20000401
  3. FLUVASTATIN (FLUVASTATIN) [Concomitant]
  4. DOXAZOSIN (DOXAZOSIN) [Concomitant]

REACTIONS (7)
  - AUTOIMMUNE HEPATITIS [None]
  - BLOOD CHOLINESTERASE DECREASED [None]
  - COMPLEMENT FACTOR C3 DECREASED [None]
  - COMPLEMENT FACTOR C4 DECREASED [None]
  - HEPATIC FIBROSIS [None]
  - HEPATOCELLULAR DAMAGE [None]
  - PROTEIN TOTAL INCREASED [None]
